FAERS Safety Report 5975941-4 (Version None)
Quarter: 2008Q4

REPORT INFORMATION
  Report Type: 
  Country: None (occurrence: None)
  Receive Date: 20081124
  Receipt Date: 20080611
  Transmission Date: 20090506
  Serious: Yes (Other)
  Sender: FDA-Public Use
  Company Number: 49329

PATIENT
  Sex: Male

DRUGS (8)
  1. AMIODARONE HCL [Suspect]
     Indication: ATRIAL FIBRILLATION
     Dates: start: 20080202, end: 20080204
  2. CELEXA [Concomitant]
  3. PROSCAR [Concomitant]
  4. REMERON [Concomitant]
  5. ZOCOR [Concomitant]
  6. NEPHROCAP [Concomitant]
  7. VITAMIN D [Concomitant]
  8. ASPIRIN [Concomitant]

REACTIONS (2)
  - RASH [None]
  - RENAL FAILURE [None]
